FAERS Safety Report 11704009 (Version 1)
Quarter: 2015Q4

REPORT INFORMATION
  Report Type: Spontaneous
  Country: US (occurrence: None)
  Receive Date: 20151105
  Receipt Date: 20151105
  Transmission Date: 20160304
  Serious: Yes (Disabling, Other)
  Sender: FDA-Public Use
  Company Number: None

PATIENT
  Age: 44 Year
  Sex: Male
  Weight: 99.79 kg

DRUGS (3)
  1. NEUPOGEN [Suspect]
     Active Substance: FILGRASTIM
     Indication: STEM CELL TRANSPLANT
     Dosage: SHOTS FOR SEVEN DAYS, TWICE DAILY,  GIVEN INTO/UNDER THE SKIN
     Route: 058
  2. ANTI-DIAHREALS [Concomitant]
  3. VITAMIN D [Concomitant]
     Active Substance: CHOLECALCIFEROL

REACTIONS (4)
  - Fatigue [None]
  - Immune system disorder [None]
  - Multiple sclerosis [None]
  - Impaired work ability [None]

NARRATIVE: CASE EVENT DATE: 20111117
